FAERS Safety Report 10922976 (Version 1)
Quarter: 2015Q1

REPORT INFORMATION
  Report Type: Spontaneous
  Country: JP (occurrence: JP)
  Receive Date: 20150317
  Receipt Date: 20150317
  Transmission Date: 20150721
  Serious: Yes (Hospitalization, Other)
  Sender: FDA-Public Use
  Company Number: JP-PFIZER INC-2015091965

PATIENT
  Age: 45 Year
  Sex: Male

DRUGS (2)
  1. THYRADIN [Concomitant]
     Active Substance: LEVOTHYROXINE
     Indication: BLOOD THYROID STIMULATING HORMONE INCREASED
     Dosage: UNK
  2. TORISEL [Suspect]
     Active Substance: TEMSIROLIMUS
     Indication: RENAL CELL CARCINOMA
     Dosage: UNK
     Dates: start: 20120622, end: 20120914

REACTIONS (6)
  - Disease progression [Unknown]
  - Renal cell carcinoma [Unknown]
  - Pyrexia [Unknown]
  - Diarrhoea [Unknown]
  - Gastrointestinal erosion [Unknown]
  - Ileus [Unknown]
